FAERS Safety Report 23197849 (Version 2)
Quarter: 2023Q4

REPORT INFORMATION
  Report Type: Report from Study
  Country: CA (occurrence: CA)
  Receive Date: 20231117
  Receipt Date: 20231208
  Transmission Date: 20240110
  Serious: Yes (Life-Threatening)
  Sender: FDA-Public Use
  Company Number: CA-002147023-NVSC2023CA245507

PATIENT
  Age: 37 Year
  Sex: Female

DRUGS (1)
  1. KESIMPTA [Suspect]
     Active Substance: OFATUMUMAB
     Indication: Relapsing-remitting multiple sclerosis
     Dosage: 20 MG, QMO
     Route: 058
     Dates: start: 20231110

REACTIONS (7)
  - Feeling abnormal [Recovering/Resolving]
  - Inflammation [Recovering/Resolving]
  - Neuralgia [Recovering/Resolving]
  - Pain in extremity [Recovering/Resolving]
  - Dysgeusia [Recovering/Resolving]
  - Migraine [Recovering/Resolving]
  - Dizziness [Unknown]

NARRATIVE: CASE EVENT DATE: 20231110
